FAERS Safety Report 10563243 (Version 1)
Quarter: 2014Q4

REPORT INFORMATION
  Report Type: Spontaneous
  Country: US (occurrence: None)
  Receive Date: 20141103
  Receipt Date: 20141103
  Transmission Date: 20150529
  Serious: No
  Sender: FDA-Public Use
  Company Number: None

PATIENT
  Age: 38 Year
  Sex: Female

DRUGS (7)
  1. CLOBETASOL [Concomitant]
     Active Substance: CLOBETASOL
  2. DACARBAZINE. [Suspect]
     Active Substance: DACARBAZINE
     Route: 042
  3. LEUPROLIDE [Concomitant]
     Active Substance: LEUPROLIDE
  4. DOXORUBICIN [Suspect]
     Active Substance: DOXORUBICIN
     Indication: LYMPHOMA
     Route: 042
     Dates: start: 20140807, end: 20140807
  5. CALCIUM CARBONATE. [Concomitant]
     Active Substance: CALCIUM CARBONATE
  6. MULTIVITAMIN [Concomitant]
     Active Substance: VITAMINS
  7. HYDROXYZINE [Concomitant]
     Active Substance: HYDROXYZINE\HYDROXYZINE HYDROCHLORIDE

REACTIONS (6)
  - Skin necrosis [None]
  - Rash maculo-papular [None]
  - Erythema [None]
  - Rash pruritic [None]
  - Rash pustular [None]
  - Pain [None]

NARRATIVE: CASE EVENT DATE: 20140812
